FAERS Safety Report 18274509 (Version 1)
Quarter: 2020Q3

REPORT INFORMATION
  Report Type: Spontaneous
  Country: PL (occurrence: PL)
  Receive Date: 20200916
  Receipt Date: 20200916
  Transmission Date: 20201103
  Serious: Yes (Other)
  Sender: FDA-Public Use
  Company Number: PL-PFIZER INC-2020354109

PATIENT
  Age: 60 Year
  Sex: Female

DRUGS (11)
  1. TAMOXIFEN [Concomitant]
     Active Substance: TAMOXIFEN
     Dosage: 20 MG (1?0?0?0)
  2. SIMVASTATIN. [Concomitant]
     Active Substance: SIMVASTATIN
     Dosage: 40 MG (0?0?0?1)
  3. MANTI [Concomitant]
     Dosage: (1?0?0?1)
  4. TRASTUZUMAB. [Suspect]
     Active Substance: TRASTUZUMAB
     Indication: BREAST CANCER
     Dosage: UNK
     Route: 065
  5. NAPROXEN. [Concomitant]
     Active Substance: NAPROXEN
     Dosage: 250 MG (1?0?1)
  6. PARACETAMOL [Concomitant]
     Active Substance: ACETAMINOPHEN
     Dosage: 500 MG (1?1?1?1)
  7. FLUOXETINE [Concomitant]
     Active Substance: FLUOXETINE HYDROCHLORIDE
     Dosage: 20 MG (1?0?0?0)
  8. ALUGASTRIN [Concomitant]
     Dosage: 15 ML (1?1?1?1)
  9. FUROSEMIDE. [Concomitant]
     Active Substance: FUROSEMIDE
     Dosage: 40 MG (1?0?0?1)
  10. ASPIRIN [ACETYLSALICYLIC ACID] [Concomitant]
     Active Substance: ASPIRIN
     Dosage: 75 MG (EC)
  11. IBUPROFEN. [Concomitant]
     Active Substance: IBUPROFEN
     Dosage: 200 MG (1?1?0?1)

REACTIONS (9)
  - Cardiac failure [Unknown]
  - Condition aggravated [Unknown]
  - Nausea [Unknown]
  - Back pain [Unknown]
  - Fatigue [Unknown]
  - Myalgia [Unknown]
  - Dyspepsia [Unknown]
  - Neoplasm progression [Unknown]
  - Seizure [Unknown]
